FAERS Safety Report 20755141 (Version 1)
Quarter: 2022Q2

REPORT INFORMATION
  Report Type: Spontaneous
  Country: GR (occurrence: GR)
  Receive Date: 20220427
  Receipt Date: 20220427
  Transmission Date: 20220720
  Serious: Yes (Other)
  Sender: FDA-Public Use
  Company Number: GR-NOVOPROD-883309

PATIENT
  Age: 50 Year
  Sex: Female
  Weight: 132 kg

DRUGS (4)
  1. SAXENDA [Suspect]
     Active Substance: LIRAGLUTIDE
     Dosage: 1.8 MG, QD
     Route: 058
  2. SAXENDA [Suspect]
     Active Substance: LIRAGLUTIDE
     Indication: Obesity
     Dosage: 2.4 MG, QD
     Route: 058
     Dates: start: 202112
  3. SAXENDA [Suspect]
     Active Substance: LIRAGLUTIDE
     Dosage: 3 MG, QD
     Route: 058
  4. TIROSINT-SOL [Concomitant]
     Active Substance: LEVOTHYROXINE SODIUM
     Indication: Autoimmune thyroiditis
     Dosage: 175MG
     Route: 065

REACTIONS (7)
  - Hypoglycaemic unconsciousness [Recovered/Resolved]
  - Blood pressure diastolic decreased [Recovered/Resolved]
  - COVID-19 [Recovered/Resolved]
  - Syncope [Recovered/Resolved]
  - Eye contusion [Recovered/Resolved]
  - Diarrhoea [Recovered/Resolved]
  - Product dose omission in error [Recovered/Resolved]
